FAERS Safety Report 20101008 (Version 1)
Quarter: 2021Q4

REPORT INFORMATION
  Report Type: Spontaneous
  Country: TR (occurrence: None)
  Receive Date: 20211123
  Receipt Date: 20211123
  Transmission Date: 20220303
  Serious: Yes (Other)
  Sender: FDA-Public Use
  Company Number: TR-Unichem Pharmaceuticals (USA) Inc-UCM202111-001065

PATIENT
  Age: 4 Year
  Sex: Female

DRUGS (2)
  1. DIVALPROEX SODIUM [Suspect]
     Active Substance: DIVALPROEX SODIUM
     Indication: Epilepsy
     Dosage: UNKNOWN
  2. BUTAMIRATE CITRATE [Suspect]
     Active Substance: BUTAMIRATE CITRATE
     Indication: Product used for unknown indication
     Dosage: UNKNOWN

REACTIONS (2)
  - Dystonia [Recovered/Resolved]
  - Drug interaction [Unknown]
